FAERS Safety Report 19099071 (Version 1)
Quarter: 2021Q2

REPORT INFORMATION
  Report Type: Report from Study
  Country: US (occurrence: US)
  Receive Date: 20210406
  Receipt Date: 20210406
  Transmission Date: 20210717
  Serious: Yes (Other)
  Sender: FDA-Public Use
  Company Number: US-MYLANLABS-2021M1020458

PATIENT
  Sex: Female

DRUGS (3)
  1. KEYTRUDA [Concomitant]
     Active Substance: PEMBROLIZUMAB
     Dosage: UNK
  2. CISPLATIN. [Suspect]
     Active Substance: CISPLATIN
     Indication: PRODUCT USED FOR UNKNOWN INDICATION
     Dosage: UNK
  3. ENFORTUMAB VEDOTIN [Suspect]
     Active Substance: ENFORTUMAB VEDOTIN
     Indication: BLADDER CANCER
     Dosage: UNK
     Route: 065

REACTIONS (9)
  - Nail disorder [Unknown]
  - Dry eye [Unknown]
  - Rash [Recovered/Resolved]
  - Lacrimation increased [Unknown]
  - Fatigue [Unknown]
  - Alopecia [Recovering/Resolving]
  - Dry skin [Unknown]
  - Neuropathy peripheral [Unknown]
  - Taste disorder [Unknown]
